FAERS Safety Report 8977877 (Version 3)
Quarter: 2013Q2

REPORT INFORMATION
  Report Type: Report from Study
  Country: US (occurrence: US)
  Receive Date: 20121220
  Receipt Date: 20130430
  Transmission Date: 20140414
  Serious: Yes (Hospitalization, Other)
  Sender: FDA-Public Use
  Company Number: PHEH2012US024954

PATIENT
  Age: 37 Year
  Sex: Female
  Weight: 75 kg

DRUGS (26)
  1. MYFORTIC [Suspect]
     Indication: RENAL AND PANCREAS TRANSPLANT
     Dosage: 720 MG, BID
     Route: 048
     Dates: start: 20060209
  2. TYLENOL [Concomitant]
  3. AMOXICILLIN [Concomitant]
     Dosage: 500 MG, TID
  4. ASPIRIN [Concomitant]
     Dosage: 81 MG, QD
  5. CLONAZEPAM [Concomitant]
     Dosage: 0.25 MG, QD
  6. PLAVIX [Concomitant]
     Dosage: 75 MG, QD
  7. LEXAPRO [Concomitant]
     Dosage: 20 MG, QD
  8. GABAPENTIN [Concomitant]
     Dosage: 300 MG, QD
  9. LOPID [Concomitant]
     Dosage: 600 MG, BID
  10. SYNTHROID [Concomitant]
     Dosage: 50 UG, QD
  11. CLARITIN [Concomitant]
     Dosage: 10 MG, QD
  12. LOVASTATIN [Concomitant]
     Dosage: 40 MG, QD
  13. METOPROLOL [Concomitant]
     Dosage: 50 MG, BID
  14. OMEPRAZOLE [Concomitant]
     Dosage: 40 MG, QD
  15. PREDNISONE [Concomitant]
     Dosage: 5 MG, QD
  16. TACROLIMUS [Concomitant]
     Dosage: 2 MG, QD
  17. TRAMADOL [Concomitant]
     Dosage: 50 MG, UNK
  18. MEVACOR [Concomitant]
     Dosage: 40 MG, UNK
  19. SIROLIMUS [Concomitant]
     Dosage: 1 MG, UNK
  20. CALCITRIOL [Concomitant]
     Dosage: 0.25 UG, UNK
  21. CINACALCET [Concomitant]
     Dosage: 30 MG, UNK
  22. SEVELAMER [Concomitant]
     Dosage: 800 MG, UNK
  23. INSULIN ASPART [Concomitant]
     Dosage: 100 UKN, UNK
  24. INSULIN GLARGINE [Concomitant]
     Dosage: 100 UKN, UNK
  25. ACYCLOVIR [Concomitant]
     Dosage: 800 MG, UNK
     Route: 048
  26. AUGMENTAN [Concomitant]
     Dosage: UNK

REACTIONS (24)
  - Dehydration [Unknown]
  - Nausea [Recovered/Resolved]
  - Vomiting [Recovered/Resolved]
  - Toxicity to various agents [Unknown]
  - Joint dislocation [Recovered/Resolved]
  - Coronary artery disease [Unknown]
  - Urinary retention [Recovered/Resolved]
  - Urinary tract infection [Recovered/Resolved]
  - Sepsis [Unknown]
  - Ligament rupture [Recovered/Resolved]
  - Restless legs syndrome [Unknown]
  - Anxiety disorder [Recovered/Resolved]
  - Hyperkalaemia [Unknown]
  - Cataract [Recovered/Resolved]
  - Osteopenia [Recovered/Resolved]
  - Acidosis [Unknown]
  - Nasopharyngitis [Unknown]
  - Hypotension [Unknown]
  - Blood pressure increased [Unknown]
  - Pharyngitis [Recovered/Resolved]
  - Gastrooesophageal reflux disease [Unknown]
  - Uterine leiomyoma [Unknown]
  - Menorrhagia [Recovered/Resolved]
  - Heart rate increased [Unknown]
